FAERS Safety Report 6333184-9 (Version None)
Quarter: 2009Q3

REPORT INFORMATION
  Report Type: 
  Country: None (occurrence: None)
  Receive Date: 20090828
  Receipt Date: 20090820
  Transmission Date: 20100115
  Serious: Yes (Hospitalization, Other)
  Sender: FDA-Public Use
  Company Number: US-ROCHE-652013

PATIENT
  Sex: Female

DRUGS (5)
  1. BONIVA [Suspect]
     Indication: DRUG USE FOR UNKNOWN INDICATION
     Route: 065
  2. ZANTAC 75 [Suspect]
     Dosage: OTHER INDICATION: SOUR STOMACH
     Route: 048
     Dates: start: 20060601
  3. CALCIUM [Concomitant]
     Indication: OSTEOPOROSIS
     Dosage: CALCIUM SUPPLEMENT
  4. PRAVACHOL [Concomitant]
  5. ATENOLOL [Concomitant]
     Route: 048
     Dates: start: 20050101

REACTIONS (13)
  - ABDOMINAL DISCOMFORT [None]
  - ABDOMINAL PAIN [None]
  - ASTHENIA [None]
  - BRONCHITIS [None]
  - CHEST DISCOMFORT [None]
  - DIZZINESS [None]
  - DRUG ADMINISTRATION ERROR [None]
  - FATIGUE [None]
  - PAIN [None]
  - PULMONARY OEDEMA [None]
  - SYNCOPE [None]
  - TENSION HEADACHE [None]
  - VERTIGO [None]
